FAERS Safety Report 6016783-3 (Version None)
Quarter: 2008Q4

REPORT INFORMATION
  Report Type: 
  Country: None (occurrence: None)
  Receive Date: 20081222
  Receipt Date: 20081222
  Transmission Date: 20090506
  Serious: Yes (Hospitalization)
  Sender: FDA-Public Use
  Company Number: A0761225A

PATIENT
  Sex: Male

DRUGS (3)
  1. ADVAIR DISKUS 250/50 [Suspect]
     Indication: ASTHMA
     Dosage: 1PUFF TWICE PER DAY
     Route: 055
  2. ALBUTEROL [Concomitant]
  3. NASONEX [Concomitant]

REACTIONS (2)
  - OESOPHAGEAL ACHALASIA [None]
  - SWELLING [None]
